FAERS Safety Report 7958132-7 (Version None)
Quarter: 2011Q4

REPORT INFORMATION
  Report Type: 
  Country: None (occurrence: None)
  Receive Date: 20111201
  Receipt Date: 20111117
  Transmission Date: 20120403
  Serious: Yes (Hospitalization, Other)
  Sender: FDA-Public Use
  Company Number: AUR-APL-2011-05896

PATIENT
  Age: 49 Year
  Sex: Male

DRUGS (18)
  1. OXAZEPAM [Concomitant]
  2. DIPYRIDAMOLE [Concomitant]
  3. HYDROCHLOROTHIAZIDE [Concomitant]
  4. FOLIC ACID [Concomitant]
  5. TEMAZEPAM [Concomitant]
  6. CARBASALATE CALCIUM (CARBASALATE CALCIUM) [Concomitant]
  7. VITAMIN B12 [Concomitant]
  8. CLOZAPINE [Suspect]
     Indication: SCHIZOPHRENIA, PARANOID TYPE
     Dosage: 325 MG, 1 D; 250 MG, 1D; 500 MG, 1 D; 300 MG
  9. LOSARTAN POTASSIUM [Concomitant]
  10. ENALAPRIL MALEATE [Suspect]
     Indication: HYPERTENSION
     Dosage: 10 MG, 1 D
  11. QUETIAPINE FUMARATE [Concomitant]
  12. RISPERIDONE [Suspect]
     Indication: SCHIZOPHRENIA, PARANOID TYPE
     Dosage: 2 MG
  13. AMLODIPINE [Suspect]
     Indication: HYPERTENSION
     Dosage: 5 MG
  14. HALOPERIDOL [Concomitant]
  15. BARNIDIPINE (BARNIDIPINE) [Concomitant]
  16. METOPROLOL TARTRATE [Suspect]
     Indication: HYPERTENSION
     Dosage: 50 MG,1 D; 200 MG, 1 D
  17. SIMVASTATIN [Concomitant]
  18. ESOMEPRAZOLE MAGNESIUM [Concomitant]

REACTIONS (12)
  - DRUG HYPERSENSITIVITY [None]
  - HYPERTENSION [None]
  - EYELID OEDEMA [None]
  - OEDEMA PERIPHERAL [None]
  - LEFT VENTRICULAR HYPERTROPHY [None]
  - HYPERTENSIVE CRISIS [None]
  - ANGIOEDEMA [None]
  - EXTRAPYRAMIDAL DISORDER [None]
  - PSYCHOTIC DISORDER [None]
  - LACUNAR INFARCTION [None]
  - PERIORBITAL OEDEMA [None]
  - TACHYCARDIA [None]
